FAERS Safety Report 8502771-1 (Version None)
Quarter: 2012Q3

REPORT INFORMATION
  Report Type: 
  Country: None (occurrence: None)
  Receive Date: 20120706
  Receipt Date: 20120706
  Transmission Date: 20120928
  Serious: Yes (Hospitalization)
  Sender: FDA-Public Use
  Company Number: None

PATIENT
  Sex: Female
  Weight: 99.3377 kg

DRUGS (1)
  1. ONDANSETRON INJECTION 4 MG/2 ML WESTWARD [Suspect]
     Indication: VOMITING
     Dosage: 4 MG IV BOLUS
     Route: 040
     Dates: start: 20120623, end: 20120623

REACTIONS (6)
  - HYPOPNOEA [None]
  - BLOOD PRESSURE DIASTOLIC DECREASED [None]
  - ABDOMINAL PAIN [None]
  - UNRESPONSIVE TO STIMULI [None]
  - NAUSEA [None]
  - LETHARGY [None]
